FAERS Safety Report 20096300 (Version 2)
Quarter: 2021Q4

REPORT INFORMATION
  Report Type: Spontaneous
  Country: US (occurrence: None)
  Receive Date: 20211122
  Receipt Date: 20211213
  Transmission Date: 20220303
  Serious: No
  Sender: FDA-Public Use
  Company Number: 2021A809820

PATIENT
  Age: 57 Year
  Sex: Female
  Weight: 79.4 kg

DRUGS (1)
  1. NEXIUM [Suspect]
     Active Substance: ESOMEPRAZOLE MAGNESIUM
     Dosage: UNKNOWN
     Route: 048
     Dates: end: 2019

REACTIONS (7)
  - Post-traumatic stress disorder [Unknown]
  - Abdominal pain upper [Unknown]
  - Flatulence [Unknown]
  - Depression [Unknown]
  - Inability to afford medication [Unknown]
  - Gastric pH decreased [Unknown]
  - Gastric ulcer [Unknown]

NARRATIVE: CASE EVENT DATE: 20150101
